FAERS Safety Report 9693030 (Version 1)
Quarter: 2013Q4

REPORT INFORMATION
  Report Type: Spontaneous
  Country: US (occurrence: None)
  Receive Date: 20131115
  Receipt Date: 20131115
  Transmission Date: 20140711
  Serious: No
  Sender: FDA-Public Use
  Company Number: None

PATIENT
  Age: 67 Year
  Sex: Female
  Weight: 99.34 kg

DRUGS (1)
  1. CIPROFLOXACIN HCL [Suspect]
     Indication: URINARY TRACT INFECTION
     Dosage: 250 MG.  4 DAILY  MOUTH
     Route: 048
     Dates: start: 20131028, end: 20131030

REACTIONS (4)
  - Nervousness [None]
  - Insomnia [None]
  - Dizziness [None]
  - Heart rate abnormal [None]
